FAERS Safety Report 16227157 (Version 1)
Quarter: 2019Q2

REPORT INFORMATION
  Report Type: Spontaneous
  Country: DE (occurrence: DE)
  Receive Date: 20190423
  Receipt Date: 20190423
  Transmission Date: 20190711
  Serious: Yes (Life-Threatening, Hospitalization, Other)
  Sender: FDA-Public Use
  Company Number: DE-MACLEODS PHARMACEUTICALS US LTD-MAC2019020992

PATIENT

DRUGS (1)
  1. VENLAFAXINE [Suspect]
     Active Substance: VENLAFAXINE HYDROCHLORIDE
     Indication: SUICIDE ATTEMPT
     Dosage: 9 GRAM
     Route: 065

REACTIONS (5)
  - Cardiogenic shock [Recovered/Resolved]
  - Intentional overdose [Unknown]
  - Suicide attempt [Recovered/Resolved]
  - Cardiac arrest [Recovered/Resolved]
  - Seizure [Unknown]
